FAERS Safety Report 8812233 (Version 2)
Quarter: 2015Q1

REPORT INFORMATION
  Report Type: Report from Study
  Country: US (occurrence: US)
  Receive Date: 20120927
  Receipt Date: 20150324
  Transmission Date: 20150721
  Serious: Yes (Death, Hospitalization, Other)
  Sender: FDA-Public Use
  Company Number: US-ROCHE-1124852

PATIENT
  Sex: Male

DRUGS (8)
  1. AVASTIN [Suspect]
     Active Substance: BEVACIZUMAB
     Indication: MALIGNANT URINARY TRACT NEOPLASM
     Route: 042
  2. DECADRON [Concomitant]
     Active Substance: DEXAMETHASONE
     Route: 065
  3. CYCLOSPORIN [Concomitant]
     Active Substance: CYCLOSPORINE
     Route: 065
  4. RECLAST [Concomitant]
     Active Substance: ZOLEDRONIC ACID
     Indication: OSTEOPOROSIS
     Route: 065
  5. TORISEL [Concomitant]
     Active Substance: TEMSIROLIMUS
     Route: 042
     Dates: start: 20080915
  6. AVASTIN [Suspect]
     Active Substance: BEVACIZUMAB
     Indication: RENAL CANCER
     Route: 042
     Dates: start: 20080709
  7. CYCLOSPORIN [Concomitant]
     Active Substance: CYCLOSPORINE
     Route: 065
  8. ALTACE [Concomitant]
     Active Substance: RAMIPRIL
     Route: 048

REACTIONS (17)
  - Death [Fatal]
  - Nausea [Unknown]
  - Hypertension [Unknown]
  - Diarrhoea [Unknown]
  - Anxiety [Unknown]
  - Dehydration [Unknown]
  - Anaemia [Unknown]
  - Vision blurred [Unknown]
  - Glossodynia [Unknown]
  - Pruritus [Recovered/Resolved]
  - Rhinorrhoea [Unknown]
  - Rash [Recovered/Resolved]
  - Fatigue [Unknown]
  - Nervousness [Unknown]
  - Mucosal inflammation [Unknown]
  - Osteopenia [Unknown]
  - Dysphagia [Unknown]
